FAERS Safety Report 10557021 (Version 1)
Quarter: 2014Q4

REPORT INFORMATION
  Report Type: Spontaneous
  Country: US (occurrence: US)
  Receive Date: 20141031
  Receipt Date: 20141031
  Transmission Date: 20150529
  Serious: No
  Sender: FDA-Public Use
  Company Number: US-B.I. PHARMACEUTICALS,INC./RIDGEFIELD-2014-BI-50391BP

PATIENT
  Age: 60 Year
  Sex: Female

DRUGS (6)
  1. MODAFINIL. [Concomitant]
     Active Substance: MODAFINIL
     Indication: FATIGUE
  2. SONATA [Concomitant]
     Active Substance: ZALEPLON
     Indication: INSOMNIA
     Route: 065
     Dates: start: 20140516
  3. DEPAKOTE [Concomitant]
     Active Substance: DIVALPROEX SODIUM
     Indication: MOOD SWINGS
     Dosage: 650 MG
     Route: 048
     Dates: start: 20140718
  4. LATUDA [Concomitant]
     Active Substance: LURASIDONE HYDROCHLORIDE
     Indication: MOOD SWINGS
     Dosage: 20 MG
     Route: 048
     Dates: start: 20140718
  5. MIRAPEX [Suspect]
     Active Substance: PRAMIPEXOLE DIHYDROCHLORIDE
     Indication: BIPOLAR I DISORDER
     Dosage: 0.125 MG
     Route: 048
     Dates: start: 201410, end: 201410
  6. MODAFINIL. [Concomitant]
     Active Substance: MODAFINIL
     Indication: MULTIPLE SCLEROSIS
     Dosage: 200 MG
     Route: 048
     Dates: start: 20140919

REACTIONS (4)
  - Off label use [Unknown]
  - Drug intolerance [Unknown]
  - Periorbital oedema [Unknown]
  - Hypomania [Recovered/Resolved]

NARRATIVE: CASE EVENT DATE: 201410
